FAERS Safety Report 18797553 (Version 2)
Quarter: 2021Q1

REPORT INFORMATION
  Report Type: Report from Study
  Country: NL (occurrence: NL)
  Receive Date: 20210128
  Receipt Date: 20210203
  Transmission Date: 20210419
  Serious: Yes (Life-Threatening)
  Sender: FDA-Public Use
  Company Number: NL-ROCHE-2755571

PATIENT
  Age: 75 Year
  Sex: Male

DRUGS (3)
  1. LENALIDOMIDE [Suspect]
     Active Substance: LENALIDOMIDE
     Indication: CHRONIC LYMPHOCYTIC LEUKAEMIA
     Dosage: MOST RECENT DOSE OF LENALIDOMIDE RECEIVED ON 25/NOV/2014
     Route: 065
     Dates: start: 20131218
  2. CHLORAMBUCIL [Suspect]
     Active Substance: CHLORAMBUCIL
     Indication: CHRONIC LYMPHOCYTIC LEUKAEMIA
     Dosage: ON 05/MAY/2014, HE RECEIVED THE MOST RECENT DOSE OF CHLORAMBUCIL PRIOR TO SERIOUS ADVERSE EVENT (SAE
     Route: 065
     Dates: start: 20131210
  3. RITUXIMAB. [Suspect]
     Active Substance: RITUXIMAB
     Indication: CHRONIC LYMPHOCYTIC LEUKAEMIA
     Dosage: ON 29/APR/2014, HE RECEIVED THE MOST RECENT DOSE OF RITUXIMAB PRIOR TO SERIOUS ADVERSE EVENT (SAE)
     Route: 065
     Dates: start: 20131210

REACTIONS (1)
  - Glioblastoma [Not Recovered/Not Resolved]

NARRATIVE: CASE EVENT DATE: 20201203
